FAERS Safety Report 4647738-9 (Version None)
Quarter: 2005Q2

REPORT INFORMATION
  Report Type: 
  Country: None (occurrence: None)
  Receive Date: 20050426
  Receipt Date: 20050407
  Transmission Date: 20051028
  Serious: Yes (Hospitalization)
  Sender: FDA-Public Use
  Company Number: JP-SANOFI-SYNTHELABO-A01200501908

PATIENT
  Age: 86 Year
  Sex: Female

DRUGS (2)
  1. MYSLEE - (ZOLPIDEM TARTRATE) - TABLET - 5 MG [Suspect]
     Indication: INSOMNIA
     Dosage: 5 MG ONCE
     Route: 048
     Dates: start: 20050323, end: 20050323
  2. CEFPIRAMIDE SODIUM [Concomitant]

REACTIONS (10)
  - BLOOD PH DECREASED [None]
  - COMA [None]
  - DEPRESSED LEVEL OF CONSCIOUSNESS [None]
  - HYPOVENTILATION [None]
  - PCO2 INCREASED [None]
  - PULMONARY HAEMORRHAGE [None]
  - PUPILLARY REFLEX IMPAIRED [None]
  - RESPIRATORY DEPRESSION [None]
  - UNRESPONSIVE TO PAIN STIMULI [None]
  - URINARY INCONTINENCE [None]
